FAERS Safety Report 4640805-5 (Version None)
Quarter: 2005Q2

REPORT INFORMATION
  Report Type: 
  Country: None (occurrence: None)
  Receive Date: 20050324
  Receipt Date: 20050104
  Transmission Date: 20051028
  Serious: No
  Sender: FDA-Public Use
  Company Number: 211606

PATIENT
  Age: 62 Year
  Sex: Male

DRUGS (7)
  1. AVASTIN [Suspect]
     Indication: COLON CANCER METASTATIC
     Dosage: Q3W, INTRAVENOUS
     Route: 042
     Dates: start: 20041215
  2. OXALIPLATIN(OXALIPLATIN) [Suspect]
     Indication: COLON CANCER METASTATIC
     Dates: start: 20041215, end: 20041215
  3. 5-FU (FLUOROURACIL) [Concomitant]
  4. INSULIN [Concomitant]
  5. ASPIRIN [Concomitant]
  6. BETA BLOCKER (UNK INGREDIENTS)(BETA BLOCKERS NOS) [Concomitant]
  7. HYDROCHLOROTHIAZIDE [Concomitant]

REACTIONS (3)
  - LACRIMATION INCREASED [None]
  - NEUROPATHY PERIPHERAL [None]
  - PRURITUS [None]
